FAERS Safety Report 9637172 (Version 1)
Quarter: 2013Q4

REPORT INFORMATION
  Report Type: Spontaneous
  Country: GB (occurrence: GB)
  Receive Date: 20131022
  Receipt Date: 20131022
  Transmission Date: 20140711
  Serious: Yes (Death)
  Sender: FDA-Public Use
  Company Number: GB-JNJFOC-20131010478

PATIENT
  Age: 40 Year
  Sex: Male

DRUGS (3)
  1. FENTANYL [Suspect]
     Indication: PRODUCT USED FOR UNKNOWN INDICATION
     Route: 062
     Dates: start: 20121103
  2. PREGABALIN [Concomitant]
     Indication: NEUROLOGICAL SYMPTOM
     Route: 065
  3. PREGABALIN [Concomitant]
     Indication: PAIN
     Route: 065

REACTIONS (2)
  - Death [Fatal]
  - Drug diversion [Unknown]
